FAERS Safety Report 15373478 (Version 1)
Quarter: 2018Q3

REPORT INFORMATION
  Report Type: Spontaneous
  Country: US (occurrence: US)
  Receive Date: 20180912
  Receipt Date: 20180912
  Transmission Date: 20181010
  Serious: Yes (Other)
  Sender: FDA-Public Use
  Company Number: PHHY2018US089992

PATIENT

DRUGS (4)
  1. PAZOPANIB [Suspect]
     Active Substance: PAZOPANIB
     Indication: NEOPLASM
     Dosage: 200 MG, QOD
     Route: 065
  2. LAPATINIB [Interacting]
     Active Substance: LAPATINIB
     Indication: NEOPLASM
     Dosage: 500 MG, QD
     Route: 065
  3. LAPATINIB [Interacting]
     Active Substance: LAPATINIB
     Dosage: 750 MG, QD
     Route: 065
  4. PAZOPANIB [Interacting]
     Active Substance: PAZOPANIB
     Dosage: 400 MG, QOD
     Route: 065

REACTIONS (3)
  - Drug interaction [Unknown]
  - Product use in unapproved indication [Unknown]
  - Transaminases increased [Unknown]
